FAERS Safety Report 8302086-0 (Version None)
Quarter: 2012Q2

REPORT INFORMATION
  Report Type: 
  Country: None (occurrence: None)
  Receive Date: 20120420
  Receipt Date: 20120413
  Transmission Date: 20120825
  Serious: Yes (Hospitalization)
  Sender: FDA-Public Use
  Company Number: DK-B.I. PHARMACEUTICALS,INC./RIDGEFIELD-2012-SW-00305DB

PATIENT
  Sex: Male
  Weight: 106 kg

DRUGS (1)
  1. PRADAXA [Suspect]
     Indication: ATRIAL FIBRILLATION
     Dosage: 300 MG
     Route: 048
     Dates: start: 20120109, end: 20120113

REACTIONS (6)
  - CYSTITIS BACTERIAL [None]
  - DIZZINESS [None]
  - SLEEP DISORDER [None]
  - HAEMATURIA [None]
  - HEADACHE [None]
  - NAUSEA [None]
